FAERS Safety Report 10328681 (Version 1)
Quarter: 2014Q3

REPORT INFORMATION
  Report Type: Spontaneous
  Country: IT (occurrence: IT)
  Receive Date: 20140721
  Receipt Date: 20140721
  Transmission Date: 20150326
  Serious: Yes (Hospitalization)
  Sender: FDA-Public Use
  Company Number: PHHY2014IT087502

PATIENT
  Age: 56 Year
  Sex: Male

DRUGS (6)
  1. DILTIAZEM [Suspect]
     Active Substance: DILTIAZEM
     Dosage: 600 MG, ONCE/SINGLE
     Route: 048
     Dates: start: 20140708, end: 20140708
  2. TICLOPIDINE [Suspect]
     Active Substance: TICLOPIDINE
     Dosage: 2500 MG, ONCE/SINGLE
     Route: 048
     Dates: start: 20140708, end: 20140708
  3. DILTIAZEM [Suspect]
     Active Substance: DILTIAZEM
     Indication: INTENTIONAL SELF-INJURY
     Dosage: 1 DF, DAILY
  4. TICLOPIDINE [Suspect]
     Active Substance: TICLOPIDINE
     Indication: INTENTIONAL SELF-INJURY
     Dosage: 250 MG, UNK
  5. LASIX [Suspect]
     Active Substance: FUROSEMIDE
     Indication: INTENTIONAL SELF-INJURY
     Dosage: 1 DF, DAILY
  6. LASIX [Suspect]
     Active Substance: FUROSEMIDE
     Dosage: 30 DF, ONCE/SINGLE
     Route: 048
     Dates: start: 20140708, end: 20140708

REACTIONS (4)
  - Drug abuse [Recovering/Resolving]
  - Hypokalaemia [Recovering/Resolving]
  - Hypotension [Recovering/Resolving]
  - Bradycardia [Recovering/Resolving]

NARRATIVE: CASE EVENT DATE: 20140708
